FAERS Safety Report 11851493 (Version 1)
Quarter: 2015Q4

REPORT INFORMATION
  Report Type: Spontaneous
  Country: US (occurrence: US)
  Receive Date: 20151218
  Receipt Date: 20151218
  Transmission Date: 20160305
  Serious: No
  Sender: FDA-Public Use
  Company Number: US-JNJFOC-20151122879

PATIENT
  Age: 41 Year
  Sex: Male
  Weight: 95.26 kg

DRUGS (6)
  1. MENS ROGAINE EXTRA STRENGTH [Suspect]
     Active Substance: MINOXIDIL
     Indication: ALOPECIA
     Dosage: PUT DIRECTLY ON SCALP, ONCE OR TWICE A DAY
     Route: 061
     Dates: end: 20151110
  2. VITAMIN B12 [Concomitant]
     Active Substance: CYANOCOBALAMIN
     Indication: ROUTINE HEALTH MAINTENANCE
     Route: 065
  3. ALL OTHER THERAPEUTIC PRODUCTS [Concomitant]
     Active Substance: UNSPECIFIED INGREDIENT
     Indication: ROUTINE HEALTH MAINTENANCE
     Route: 065
  4. SAW PALMETTO [Concomitant]
     Active Substance: SAW PALMETTO
     Indication: ROUTINE HEALTH MAINTENANCE
     Route: 065
  5. MENS ROGAINE EXTRA STRENGTH [Suspect]
     Active Substance: MINOXIDIL
     Route: 061
  6. ZINC [Concomitant]
     Active Substance: ZINC\ZINC CHLORIDE
     Indication: ROUTINE HEALTH MAINTENANCE
     Route: 065

REACTIONS (3)
  - Inappropriate schedule of drug administration [Not Recovered/Not Resolved]
  - Wrong technique in product usage process [Not Recovered/Not Resolved]
  - Alopecia [Not Recovered/Not Resolved]

NARRATIVE: CASE EVENT DATE: 20151027
